FAERS Safety Report 7501841-4 (Version None)
Quarter: 2011Q2

REPORT INFORMATION
  Report Type: 
  Country: None (occurrence: None)
  Receive Date: 20110525
  Receipt Date: 20110513
  Transmission Date: 20111010
  Serious: Yes (Other)
  Sender: FDA-Public Use
  Company Number: BR-BAYER-2011-041468

PATIENT
  Age: 38 Year
  Sex: Female

DRUGS (3)
  1. BETAFERON [Suspect]
     Indication: MULTIPLE SCLEROSIS
     Dosage: 9.6 MIU, QOD
     Route: 058
     Dates: start: 20110323
  2. ACETAMINOPHEN [Concomitant]
     Indication: ALLERGY PROPHYLAXIS
     Dosage: 1 DF, UNK
     Route: 048
     Dates: start: 20110501
  3. IBUPROFEN [Concomitant]
     Indication: ALLERGY PROPHYLAXIS
     Dosage: 1 DF, UNK
     Route: 048
     Dates: start: 20110323, end: 20110501

REACTIONS (3)
  - OCULAR ICTERUS [None]
  - RETCHING [None]
  - ABDOMINAL PAIN UPPER [None]
